FAERS Safety Report 6624927 (Version 3)
Quarter: 2020Q3

REPORT INFORMATION
  Report Type: Spontaneous
  Country: US (occurrence: ES)
  Receive Date: 20080425
  Receipt Date: 20080814
  Transmission Date: 20201104
  Serious: Yes (Hospitalization)
  Sender: FDA-Public Use
  Company Number: ES-PURDUE-GBR_2008_0003948

PATIENT
  Age: 78 Year
  Sex: Female
  Weight: 64 kg

DRUGS (8)
  1. MORPHINE SULFATE. [Suspect]
     Active Substance: MORPHINE SULFATE
     Indication: MALIGNANT MELANOMA
     Dosage: UNK, UNK
     Route: 048
     Dates: start: 20070109
  2. TREMELIMUMAB. [Suspect]
     Active Substance: TREMELIMUMAB
     Indication: MALIGNANT MELANOMA
     Dosage: 990 MG, UNK
     Route: 042
     Dates: start: 20061115
  3. FRAXIPARINE [Concomitant]
     Active Substance: NADROPARIN CALCIUM
     Route: 048
     Dates: start: 20061224
  4. ASPARTIC ACID [Concomitant]
     Active Substance: ASPARTIC ACID
     Route: 048
     Dates: start: 20070109
  5. ESBERIVEN [Concomitant]
     Active Substance: TROXERUTIN
     Route: 048
  6. VALSARTAN. [Concomitant]
     Active Substance: VALSARTAN
     Route: 048
  7. FUROSEMIDE. [Concomitant]
     Active Substance: FUROSEMIDE
     Route: 048
     Dates: start: 20070108
  8. LORAZEPAM. [Concomitant]
     Active Substance: LORAZEPAM
     Dosage: UNK, UNK
     Route: 048
     Dates: start: 20070116

REACTIONS (3)
  - Acute kidney injury [Recovered/Resolved]
  - Disorientation [Unknown]
  - Confusional state [Recovered/Resolved]

NARRATIVE: CASE EVENT DATE: 20070130
